FAERS Safety Report 17141273 (Version 1)
Quarter: 2019Q4

REPORT INFORMATION
  Report Type: Report from Study
  Country: BR (occurrence: BR)
  Receive Date: 20191211
  Receipt Date: 20191211
  Transmission Date: 20200122
  Serious: Yes (Hospitalization, Other)
  Sender: FDA-Public Use
  Company Number: BR-JNJFOC-20190910015

PATIENT
  Age: 55 Year
  Sex: Female
  Weight: 70 kg

DRUGS (1)
  1. REMICADE [Suspect]
     Active Substance: INFLIXIMAB
     Indication: PSORIASIS
     Route: 042
     Dates: start: 2017, end: 201907

REACTIONS (8)
  - Hysterectomy [Unknown]
  - Pain [Not Recovered/Not Resolved]
  - Postoperative thrombosis [Unknown]
  - Product use issue [Unknown]
  - Off label use [Unknown]
  - Depression postoperative [Not Recovered/Not Resolved]
  - Salpingo-oophorectomy [Unknown]
  - Drug ineffective [Unknown]

NARRATIVE: CASE EVENT DATE: 2017
